FAERS Safety Report 25910909 (Version 1)
Quarter: 2025Q4

REPORT INFORMATION
  Report Type: Spontaneous
  Country: US (occurrence: US)
  Receive Date: 20251013
  Receipt Date: 20251013
  Transmission Date: 20260118
  Serious: No
  Sender: RANBAXY
  Company Number: US-SUN PHARMACEUTICAL INDUSTRIES LTD-2025R1-519700

PATIENT
  Age: 4 Year
  Sex: Female

DRUGS (1)
  1. LORATADINE [Suspect]
     Active Substance: LORATADINE
     Indication: Antiallergic therapy
     Dosage: UNK
     Route: 047

REACTIONS (1)
  - Accidental exposure to product [Unknown]
